FAERS Safety Report 5227742-2 (Version None)
Quarter: 2007Q1

REPORT INFORMATION
  Report Type: 
  Country: None (occurrence: None)
  Receive Date: 20070202
  Receipt Date: 20070124
  Transmission Date: 20070707
  Serious: Yes (Other)
  Sender: FDA-Public Use
  Company Number: US-PFIZER INC-2007007701

PATIENT

DRUGS (2)
  1. CELECOXIB [Suspect]
  2. VALDECOXIB [Suspect]

REACTIONS (4)
  - DRUG HYPERSENSITIVITY [None]
  - ERYTHEMA [None]
  - FEELING HOT [None]
  - HYPERSENSITIVITY [None]
